FAERS Safety Report 5142078-6 (Version None)
Quarter: 2006Q4

REPORT INFORMATION
  Report Type: 
  Country: None (occurrence: None)
  Receive Date: 20061102
  Receipt Date: 20061020
  Transmission Date: 20070319
  Serious: Yes (Hospitalization)
  Sender: FDA-Public Use
  Company Number: US-AMGEN-US197529

PATIENT

DRUGS (1)
  1. EPOGEN [Suspect]
     Indication: PRE-EXISTING DISEASE

REACTIONS (1)
  - PULMONARY EMBOLISM [None]
